FAERS Safety Report 25473533 (Version 1)
Quarter: 2025Q2

REPORT INFORMATION
  Report Type: Spontaneous
  Country: US (occurrence: US)
  Receive Date: 20250624
  Receipt Date: 20250624
  Transmission Date: 20250717
  Serious: Yes (Death, Other)
  Sender: AMGEN
  Company Number: US-AMGEN-USASP2025120692

PATIENT

DRUGS (1)
  1. BEVACIZUMAB [Suspect]
     Active Substance: BEVACIZUMAB
     Indication: Haemorrhage intracranial
     Route: 065

REACTIONS (4)
  - Death [Fatal]
  - Haemorrhage intracranial [Fatal]
  - Embolism venous [Unknown]
  - Arterial thrombosis [Unknown]
